FAERS Safety Report 15264874 (Version 1)
Quarter: 2018Q3

REPORT INFORMATION
  Report Type: Spontaneous
  Country: US (occurrence: US)
  Receive Date: 20180723
  Receipt Date: 20180723
  Transmission Date: 20181010
  Serious: Yes (Other)
  Sender: FDA-Public Use
  Company Number: None

PATIENT
  Age: 67 Year
  Sex: Female
  Weight: 60.3 kg

DRUGS (13)
  1. ASPIRIN. [Concomitant]
     Active Substance: ASPIRIN
  2. ZINC. [Concomitant]
     Active Substance: ZINC
  3. VITAMIN C [Concomitant]
     Active Substance: ASCORBIC ACID
  4. CALCIUM [Concomitant]
     Active Substance: CALCIUM
  5. ARMOUR THYROID [Concomitant]
     Active Substance: THYROID, PORCINE
  6. CYCLOBENZAPRINE. [Concomitant]
     Active Substance: CYCLOBENZAPRINE
  7. COQ10 [Concomitant]
     Active Substance: UBIDECARENONE
  8. CYCLOBENZAPRINE 10 MG. GENERIC FOR FLEXIRAL [Suspect]
     Active Substance: CYCLOBENZAPRINE
     Indication: BACK PAIN
     Dosage: ?          QUANTITY:90 TABLET(S);?
     Route: 048
  9. MONTELUKAST [Concomitant]
     Active Substance: MONTELUKAST SODIUM
  10. IRBESARTAN/HCTZ [Concomitant]
     Active Substance: HYDROCHLOROTHIAZIDE\IRBESARTAN
  11. ADVIL [Concomitant]
     Active Substance: IBUPROFEN
  12. VITAMIN D [Concomitant]
     Active Substance: CHOLECALCIFEROL
  13. COD OIL [Concomitant]

REACTIONS (4)
  - Product substitution issue [None]
  - Pruritus [None]
  - Reaction to excipient [None]
  - Rash [None]

NARRATIVE: CASE EVENT DATE: 20170220
